FAERS Safety Report 5622471-5 (Version None)
Quarter: 2008Q1

REPORT INFORMATION
  Report Type: 
  Country: None (occurrence: None)
  Receive Date: 20080211
  Receipt Date: 20080129
  Transmission Date: 20080703
  Serious: Yes (Hospitalization, Congenital Anomaly)
  Sender: FDA-Public Use
  Company Number: FR-GILEAD-2008-0014981

PATIENT
  Sex: Female
  Weight: 1.26 kg

DRUGS (5)
  1. TRUVADA [Suspect]
     Route: 064
     Dates: start: 20070328, end: 20070808
  2. SUSTIVA [Suspect]
     Route: 064
     Dates: start: 20070328, end: 20070808
  3. DEPAMIDE [Suspect]
     Route: 064
     Dates: start: 20061001, end: 20070804
  4. COMBIVIR [Suspect]
     Route: 064
     Dates: start: 20070808, end: 20071207
  5. KALETRA [Suspect]
     Route: 064
     Dates: start: 20070808, end: 20071207

REACTIONS (3)
  - PREMATURE BABY [None]
  - RESPIRATORY DISTRESS [None]
  - TALIPES [None]
